FAERS Safety Report 13421103 (Version 6)
Quarter: 2017Q3

REPORT INFORMATION
  Report Type: Spontaneous
  Country: US (occurrence: US)
  Receive Date: 20170410
  Receipt Date: 20170928
  Transmission Date: 20171127
  Serious: No
  Sender: FDA-Public Use
  Company Number: US-TEVA-756321ACC

PATIENT
  Age: 66 Year
  Sex: Female

DRUGS (7)
  1. VESICARE [Concomitant]
     Active Substance: SOLIFENACIN SUCCINATE
  2. ATENOLOL. [Concomitant]
     Active Substance: ATENOLOL
  3. OXYBUTYNIN [Concomitant]
     Active Substance: OXYBUTYNIN
  4. COPAXONE [Suspect]
     Active Substance: GLATIRAMER ACETATE
     Indication: MULTIPLE SCLEROSIS
     Dosage: PEN
     Route: 058
     Dates: start: 20170126
  5. TEMAZEPAM. [Concomitant]
     Active Substance: TEMAZEPAM
  6. MONTELUKAST [Concomitant]
     Active Substance: MONTELUKAST SODIUM
  7. TOLTERODINE [Concomitant]
     Active Substance: TOLTERODINE

REACTIONS (5)
  - Motor dysfunction [Not Recovered/Not Resolved]
  - Dysstasia [Recovered/Resolved]
  - Dizziness [Recovered/Resolved]
  - Immediate post-injection reaction [Recovered/Resolved]
  - Myalgia [Not Recovered/Not Resolved]

NARRATIVE: CASE EVENT DATE: 201702
